FAERS Safety Report 15826239 (Version 1)
Quarter: 2019Q1

REPORT INFORMATION
  Report Type: Spontaneous
  Country: US (occurrence: US)
  Receive Date: 20190115
  Receipt Date: 20190115
  Transmission Date: 20190417
  Serious: Yes (Disabling, Other)
  Sender: FDA-Public Use
  Company Number: None

PATIENT
  Age: 74 Year
  Sex: Male
  Weight: 83.91 kg

DRUGS (1)
  1. OXYCODONE 30 MG [Suspect]
     Active Substance: OXYCODONE

REACTIONS (4)
  - Stress [None]
  - Depression [None]
  - Drug withdrawal syndrome [None]
  - Pain [None]

NARRATIVE: CASE EVENT DATE: 20181210
